FAERS Safety Report 9371522 (Version 1)
Quarter: 2013Q2

REPORT INFORMATION
  Report Type: Spontaneous
  Country: US (occurrence: None)
  Receive Date: 20130626
  Receipt Date: 20130626
  Transmission Date: 20140414
  Serious: Yes (Hospitalization)
  Sender: FDA-Public Use
  Company Number: None

PATIENT
  Age: 33 Year
  Sex: Female
  Weight: 73.94 kg

DRUGS (1)
  1. ABILIFY [Suspect]
     Dosage: 15 MG 1X DAILLY PO
     Route: 048

REACTIONS (5)
  - Tardive dyskinesia [None]
  - Dystonia [None]
  - Cogwheel rigidity [None]
  - Gait disturbance [None]
  - Flat affect [None]
